FAERS Safety Report 5850104-1 (Version None)
Quarter: 2008Q3

REPORT INFORMATION
  Report Type: 
  Country: None (occurrence: None)
  Receive Date: 20080819
  Receipt Date: 20080819
  Transmission Date: 20090109
  Serious: Yes (Death)
  Sender: FDA-Public Use
  Company Number: US-BOEHRINGER INGELHEIM GMBH, GERMANY-2008-BP-12996RO

PATIENT
  Age: 24 Year
  Sex: Male

DRUGS (1)
  1. METHADONE HCL [Suspect]
     Indication: MYELOPATHY
     Dates: start: 20060601

REACTIONS (2)
  - DEATH [None]
  - FEELING ABNORMAL [None]
